FAERS Safety Report 16548584 (Version 1)
Quarter: 2019Q3

REPORT INFORMATION
  Report Type: Spontaneous
  Country: US (occurrence: US)
  Receive Date: 20190709
  Receipt Date: 20190709
  Transmission Date: 20191004
  Serious: No
  Sender: FDA-Public Use
  Company Number: US-PFIZER INC-2019293848

PATIENT
  Age: 54 Year
  Sex: Male

DRUGS (2)
  1. CELEBREX [Suspect]
     Active Substance: CELECOXIB
     Dosage: UNK
  2. BUTALBITAL [Suspect]
     Active Substance: BUTALBITAL
     Dosage: UNK

REACTIONS (1)
  - Drug hypersensitivity [Unknown]
